FAERS Safety Report 16118587 (Version 1)
Quarter: 2019Q1

REPORT INFORMATION
  Report Type: Spontaneous
  Country: US (occurrence: US)
  Receive Date: 20190326
  Receipt Date: 20190326
  Transmission Date: 20190418
  Serious: No
  Sender: FDA-Public Use
  Company Number: US-HIKMA PHARMACEUTICALS USA INC.-US-H14001-18-08939

PATIENT
  Age: 68 Year
  Sex: Female

DRUGS (2)
  1. DICYCLOMINE HYDROCHLORIDE. [Suspect]
     Active Substance: DICYCLOMINE HYDROCHLORIDE
     Indication: GASTROINTESTINAL PAIN
     Route: 048
     Dates: start: 20181209, end: 20181216
  2. DICYCLOMINE HYDROCHLORIDE. [Suspect]
     Active Substance: DICYCLOMINE HYDROCHLORIDE
     Indication: IRRITABLE BOWEL SYNDROME

REACTIONS (2)
  - Abdominal discomfort [Unknown]
  - Dyspepsia [Unknown]

NARRATIVE: CASE EVENT DATE: 201812
